FAERS Safety Report 16348397 (Version 1)
Quarter: 2019Q2

REPORT INFORMATION
  Report Type: Spontaneous
  Country: US (occurrence: US)
  Receive Date: 20190418
  Receipt Date: 20190418
  Transmission Date: 20190711
  Serious: Yes (Other)
  Sender: FDA-Public Use
  Company Number: None

PATIENT
  Age: 57 Year
  Sex: Female
  Weight: 60.33 kg

DRUGS (2)
  1. PRIMIDONE. [Suspect]
     Active Substance: PRIMIDONE
     Indication: ESSENTIAL TREMOR
     Route: 048
  2. PROPRANOLOL [Suspect]
     Active Substance: PROPRANOLOL HYDROCHLORIDE
     Indication: ESSENTIAL TREMOR
     Route: 048

REACTIONS (3)
  - Hypotension [None]
  - Dizziness [None]
  - Impaired driving ability [None]
